FAERS Safety Report 9858119 (Version 2)
Quarter: 2014Q1

REPORT INFORMATION
  Report Type: Spontaneous
  Country: JP (occurrence: JP)
  Receive Date: 20140131
  Receipt Date: 20140131
  Transmission Date: 20141002
  Serious: Yes (Hospitalization)
  Sender: FDA-Public Use
  Company Number: JP-AMGEN-JPNSP2013055439

PATIENT
  Age: 36 Year
  Sex: Female

DRUGS (10)
  1. RANMARK [Suspect]
     Indication: BREAST CANCER
     Dosage: 120 MG, UNK
     Route: 058
     Dates: start: 20120507
  2. CALCIUM LACTATE [Concomitant]
     Dosage: UNKNOWN
     Route: 048
     Dates: start: 20121119
  3. ALFAROL [Concomitant]
     Dosage: AFTER BREAKFAST
     Route: 048
     Dates: start: 20130508
  4. L CARTIN [Concomitant]
     Dosage: EVERY 8 HOURS
     Route: 048
  5. TAKEPRON [Concomitant]
     Dosage: AFTER DINNER
     Route: 048
  6. NAIXAN                             /00256201/ [Concomitant]
     Dosage: AFTER EACH MEALS
     Route: 048
  7. MIYA BM [Concomitant]
     Dosage: AFTER EACH MEALS
     Route: 048
  8. LENDORMIN DAINIPPO [Concomitant]
     Dosage: AT BEDTIME
     Route: 048
  9. PURSENNID                          /00142207/ [Concomitant]
     Dosage: AFTER DINNER
     Route: 048
  10. OXYCONTIN [Concomitant]
     Dosage: EVERY 12 HOURS
     Route: 048

REACTIONS (1)
  - Hypocalcaemia [Recovered/Resolved]
